FAERS Safety Report 9263292 (Version 1)
Quarter: 2013Q2

REPORT INFORMATION
  Report Type: Spontaneous
  Country: US (occurrence: None)
  Receive Date: 20130429
  Receipt Date: 20130429
  Transmission Date: 20140414
  Serious: Yes (Other)
  Sender: FDA-Public Use
  Company Number: None

PATIENT
  Age: 88 Year
  Sex: Female
  Weight: 90.72 kg

DRUGS (1)
  1. ICY HOT MAXIMUM STRENGTH [Suspect]
     Indication: MUSCULOSKELETAL PAIN
     Dosage: MENTHOL 16% 3-4X DAILY SKIN
     Route: 061
     Dates: start: 20130406

REACTIONS (2)
  - Application site pain [None]
  - Application site pain [None]
